FAERS Safety Report 5466366-9 (Version None)
Quarter: 2007Q3

REPORT INFORMATION
  Report Type: 
  Country: None (occurrence: None)
  Receive Date: 20070920
  Receipt Date: 20070911
  Transmission Date: 20080115
  Serious: Yes (Other)
  Sender: FDA-Public Use
  Company Number: HECT-10293

PATIENT
  Age: 43 Year
  Sex: Male
  Weight: 84 kg

DRUGS (2)
  1. HECTOROL [Suspect]
     Indication: HYPERPARATHYROIDISM SECONDARY
     Dosage: 5.5. MCG ONCE IV
     Route: 042
     Dates: start: 20070720, end: 20070720
  2. ZEMPLAR [Concomitant]

REACTIONS (6)
  - ACCIDENTAL EXPOSURE [None]
  - BLOOD PARATHYROID HORMONE INCREASED [None]
  - DIARRHOEA [None]
  - NAUSEA [None]
  - VISION BLURRED [None]
  - VOMITING [None]
